FAERS Safety Report 21631434 (Version 1)
Quarter: 2022Q4

REPORT INFORMATION
  Report Type: Spontaneous
  Country: FR (occurrence: FR)
  Receive Date: 20221123
  Receipt Date: 20221123
  Transmission Date: 20230113
  Serious: Yes (Death, Hospitalization, Other)
  Sender: FDA-Public Use
  Company Number: FR-IPCA LABORATORIES LIMITED-IPC-2022-FR-001935

PATIENT

DRUGS (1)
  1. METFORMIN [Suspect]
     Active Substance: METFORMIN HYDROCHLORIDE
     Indication: Type 2 diabetes mellitus
     Dosage: 1000 MILLIGRAM, TID
     Route: 065

REACTIONS (18)
  - Acute hepatic failure [Fatal]
  - Acute kidney injury [Fatal]
  - Hepatic cytolysis [Fatal]
  - Lactic acidosis [Fatal]
  - Hepatitis E [Fatal]
  - Liver injury [Fatal]
  - Toxicity to various agents [Fatal]
  - Organ failure [Fatal]
  - Coma [Unknown]
  - Loss of consciousness [Unknown]
  - General physical health deterioration [Unknown]
  - Nausea [Unknown]
  - Pyrexia [Unknown]
  - Vomiting [Unknown]
  - Weight decreased [Unknown]
  - Emotional distress [Unknown]
  - Hepatitis A [Recovered/Resolved]
  - Overdose [Unknown]
